FAERS Safety Report 11914048 (Version 1)
Quarter: 2016Q1

REPORT INFORMATION
  Report Type: Spontaneous
  Country: BR (occurrence: BR)
  Receive Date: 20160113
  Receipt Date: 20160113
  Transmission Date: 20160526
  Serious: Yes (Life-Threatening, Hospitalization)
  Sender: FDA-Public Use
  Company Number: BR-FRESENIUS KABI-FK201600077

PATIENT
  Age: 54 Year
  Sex: Male
  Weight: 78 kg

DRUGS (16)
  1. AMINOVEN 15% [Suspect]
     Active Substance: AMINO ACIDS
     Indication: PANCREATITIS ACUTE
     Route: 042
     Dates: start: 20160101, end: 20160102
  2. POTASSIUM CHLORIDE. [Suspect]
     Active Substance: POTASSIUM CHLORIDE
     Indication: PANCREATITIS ACUTE
     Route: 042
     Dates: start: 20160101, end: 20160102
  3. GLYCOPHOS [Suspect]
     Active Substance: SODIUM GLYCEROPHOSPHATE ANHYDROUS
     Indication: PANCREATITIS ACUTE
     Route: 042
     Dates: start: 20160101, end: 20160102
  4. ENALAPRIL [Concomitant]
     Active Substance: ENALAPRIL
     Dates: start: 20151221
  5. SODIUM CHLORIDE 20% [Suspect]
     Active Substance: SODIUM CHLORIDE
     Indication: PANCREATITIS ACUTE
     Route: 042
     Dates: start: 20160101, end: 20160102
  6. TRACE ELEMENTS [Suspect]
     Active Substance: UNSPECIFIED INGREDIENT
     Indication: PANCREATITIS ACUTE
     Route: 042
     Dates: start: 20160101, end: 20160102
  7. VITAMINS [Suspect]
     Active Substance: VITAMINS
     Indication: PANCREATITIS ACUTE
     Route: 042
     Dates: start: 20160101, end: 20160102
  8. MAGNESIUM SULFAT [Suspect]
     Active Substance: MAGNESIUM SULFATE
     Indication: PANCREATITIS ACUTE
     Route: 042
     Dates: start: 20160101, end: 20160102
  9. WATER FOR INJECTIONS [Suspect]
     Active Substance: WATER
     Indication: PANCREATITIS ACUTE
     Route: 042
     Dates: start: 20160101, end: 20160102
  10. GLUCOSE 50% [Suspect]
     Active Substance: DEXTROSE
     Indication: PANCREATITIS ACUTE
     Route: 042
     Dates: start: 20160101, end: 20160102
  11. LIPOVENOES MCT 20% [Suspect]
     Active Substance: EGG PHOSPHOLIPIDS\GLYCERIN\SOYBEAN OIL
     Indication: PANCREATITIS ACUTE
     Route: 042
     Dates: start: 20160101, end: 20160102
  12. AMLODIPINE [Concomitant]
     Active Substance: AMLODIPINE BESYLATE
     Dates: start: 20151221
  13. CALCIUM GLUCONATE INJECTION, USP 10% [Suspect]
     Active Substance: CALCIUM GLUCONATE
     Indication: PANCREATITIS ACUTE
     Route: 042
     Dates: start: 20160101, end: 20160102
  14. MEROPENEM. [Concomitant]
     Active Substance: MEROPENEM
     Dates: start: 20160102
  15. FLUNARIZINE [Concomitant]
     Active Substance: FLUNARIZINE
     Dates: start: 20151221
  16. ZOLPIDEM [Concomitant]
     Active Substance: ZOLPIDEM\ZOLPIDEM TARTRATE
     Dates: start: 20151221

REACTIONS (4)
  - Pyrexia [Recovered/Resolved]
  - Oxygen saturation decreased [Recovered/Resolved]
  - Tremor [Recovered/Resolved]
  - Tachycardia [Recovered/Resolved]

NARRATIVE: CASE EVENT DATE: 20160102
